FAERS Safety Report 5504455-0 (Version None)
Quarter: 2007Q4

REPORT INFORMATION
  Report Type: 
  Country: None (occurrence: None)
  Receive Date: 20071101
  Receipt Date: 20071025
  Transmission Date: 20080405
  Serious: Yes (Other)
  Sender: FDA-Public Use
  Company Number: BR-ABBOTT-07P-020-0422336-00

PATIENT
  Age: 50 Year
  Sex: Female
  Weight: 68 kg

DRUGS (4)
  1. SIBUTRAMINE [Suspect]
     Indication: WEIGHT CONTROL
     Route: 048
     Dates: start: 20070501, end: 20070501
  2. SIBUTRAMINE [Suspect]
     Route: 048
     Dates: start: 20071001, end: 20071001
  3. THIOMUCASE [Concomitant]
     Indication: WEIGHT CONTROL
     Route: 048
     Dates: start: 20070501, end: 20070501
  4. BRIMONIDINE TARTRATE [Concomitant]
     Indication: GLAUCOMA
     Route: 061
     Dates: start: 20070401

REACTIONS (4)
  - CONSTIPATION [None]
  - HAEMORRHOIDS [None]
  - INSOMNIA [None]
  - VISION BLURRED [None]
